FAERS Safety Report 13280332 (Version 1)
Quarter: 2017Q1

REPORT INFORMATION
  Report Type: Spontaneous
  Country: GB (occurrence: GB)
  Receive Date: 20170301
  Receipt Date: 20170301
  Transmission Date: 20170428
  Serious: Yes (Other)
  Sender: FDA-Public Use
  Company Number: GB-DEXPHARM-20170267

PATIENT
  Age: 47 Year
  Sex: Female
  Weight: 84.36 kg

DRUGS (4)
  1. FEANOLLA [Concomitant]
     Active Substance: DESOGESTREL
  2. IBUPROFEN. [Concomitant]
     Active Substance: IBUPROFEN
  3. DICLOFENAC [Suspect]
     Active Substance: DICLOFENAC
     Indication: ANALGESIC THERAPY
     Route: 048
     Dates: start: 20160908, end: 20170208
  4. CITALOPRAM [Concomitant]
     Active Substance: CITALOPRAM HYDROBROMIDE

REACTIONS (2)
  - Hypersensitivity [Recovered/Resolved]
  - Blindness [Recovered/Resolved]

NARRATIVE: CASE EVENT DATE: 20170208
